FAERS Safety Report 5011734-2 (Version None)
Quarter: 2006Q2

REPORT INFORMATION
  Report Type: 
  Country: None (occurrence: None)
  Receive Date: 20060523
  Receipt Date: 20060523
  Transmission Date: 20061013
  Serious: Yes (Hospitalization)
  Sender: FDA-Public Use
  Company Number: None

PATIENT
  Age: 82 Year
  Sex: 0
  Weight: 43.0917 kg

DRUGS (4)
  1. OXANDRIN [Suspect]
     Indication: WEIGHT DECREASED
     Dosage: ONE DOSE DAILY PO
     Route: 048
     Dates: start: 20060310, end: 20060311
  2. CIPROFLOXACIN [Concomitant]
  3. ETHAMBUTOL [Concomitant]
  4. ROBITUSSIN WITH CODEINE [Concomitant]

REACTIONS (5)
  - APPETITE DISORDER [None]
  - BALANCE DISORDER [None]
  - CONFUSIONAL STATE [None]
  - DELIRIUM [None]
  - URINARY INCONTINENCE [None]
